FAERS Safety Report 11148844 (Version 1)
Quarter: 2015Q2

REPORT INFORMATION
  Report Type: Spontaneous
  Country: US (occurrence: US)
  Receive Date: 20150529
  Receipt Date: 20150529
  Transmission Date: 20150821
  Serious: No
  Sender: FDA-Public Use
  Company Number: US-HORIZON-ACT-0082-2015

PATIENT
  Age: 7 Year
  Sex: Male

DRUGS (1)
  1. ACTIMMUNE [Suspect]
     Active Substance: INTERFERON GAMMA-1B
     Indication: CHRONIC GRANULOMATOUS DISEASE
     Dosage: DAILY DOSE: 132 ?G MICROGRAM(S) EVERY WEEKS

REACTIONS (2)
  - Wrong technique in drug usage process [Unknown]
  - No adverse event [Unknown]

NARRATIVE: CASE EVENT DATE: 201501
